FAERS Safety Report 10363079 (Version 4)
Quarter: 2015Q2

REPORT INFORMATION
  Report Type: Spontaneous
  Country: JP (occurrence: JP)
  Receive Date: 20140805
  Receipt Date: 20150402
  Transmission Date: 20150821
  Serious: Yes (Hospitalization, Other)
  Sender: FDA-Public Use
  Company Number: PHHY2014JP094994

PATIENT
  Age: 55 Year
  Sex: Female

DRUGS (4)
  1. BENIDIPINE HYDROCHLORIDE [Interacting]
     Active Substance: BENIDIPINE HYDROCHLORIDE
     Indication: PRODUCT USED FOR UNKNOWN INDICATION
     Dosage: 4 MG, UNK
     Route: 048
  2. AFINITOR [Suspect]
     Active Substance: EVEROLIMUS
     Indication: BREAST CANCER RECURRENT
     Dosage: 10 MG, DAILY
     Route: 048
     Dates: start: 20140519, end: 20140619
  3. BROTIZOLAM [Concomitant]
     Active Substance: BROTIZOLAM
     Indication: PRODUCT USED FOR UNKNOWN INDICATION
     Dosage: UNK
     Route: 048
  4. ANTIHYPERTENSIVE DRUGS [Suspect]
     Active Substance: UNSPECIFIED INGREDIENT
     Indication: HYPERTENSION

REACTIONS (10)
  - Fatigue [Recovered/Resolved]
  - Malignant neoplasm progression [Unknown]
  - Feeding disorder [Unknown]
  - Erythema [Recovered/Resolved]
  - Stomatitis [Recovered/Resolved]
  - Rash [Recovering/Resolving]
  - Upper respiratory tract inflammation [Recovered/Resolved]
  - Cough [Unknown]
  - Pyrexia [Unknown]
  - Drug interaction [Unknown]

NARRATIVE: CASE EVENT DATE: 201406
